FAERS Safety Report 24687187 (Version 1)
Quarter: 2024Q4

REPORT INFORMATION
  Report Type: Spontaneous
  Country: HU (occurrence: HU)
  Receive Date: 20241202
  Receipt Date: 20241202
  Transmission Date: 20250115
  Serious: Yes (Other)
  Sender: NOVARTIS
  Company Number: HU-002147023-NVSC2024HU229036

PATIENT
  Age: 65 Year
  Sex: Female

DRUGS (4)
  1. LUTATHERA [Suspect]
     Active Substance: LUTETIUM OXODOTREOTIDE LU-177
     Indication: Neuroendocrine tumour
     Dosage: 7614 MBQ
     Route: 065
     Dates: start: 20221201
  2. LUTATHERA [Suspect]
     Active Substance: LUTETIUM OXODOTREOTIDE LU-177
     Dosage: 7618 MBQ
     Route: 065
     Dates: start: 20230202
  3. LUTATHERA [Suspect]
     Active Substance: LUTETIUM OXODOTREOTIDE LU-177
     Dosage: 7614 MBQ
     Route: 065
     Dates: start: 20230511
  4. LUTATHERA [Suspect]
     Active Substance: LUTETIUM OXODOTREOTIDE LU-177
     Dosage: 7318 MBQ
     Route: 065
     Dates: start: 20230817

REACTIONS (3)
  - Glomerular filtration rate increased [Recovered/Resolved]
  - Glomerular filtration rate increased [Unknown]
  - Aspartate aminotransferase increased [Recovered/Resolved]

NARRATIVE: CASE EVENT DATE: 20221201
